FAERS Safety Report 8828932 (Version 1)
Quarter: 2012Q4

REPORT INFORMATION
  Report Type: 
  Country: IN (occurrence: IN)
  Receive Date: 20121009
  Receipt Date: 20121009
  Transmission Date: 20130627
  Serious: Yes (Hospitalization)
  Sender: FDA-Public Use
  Company Number: IN-009507513-1210IND002830

PATIENT

DRUGS (2)
  1. VIRAFERONPEG [Suspect]
     Indication: HEPATITIS
     Dosage: 120 Microgram, qw
  2. REBETOL [Suspect]
     Indication: HEPATITIS

REACTIONS (2)
  - Asthenia [Unknown]
  - Pyrexia [Unknown]
